FAERS Safety Report 15262202 (Version 2)
Quarter: 2018Q3

REPORT INFORMATION
  Report Type: Report from Study
  Country: DE (occurrence: DE)
  Receive Date: 20180809
  Receipt Date: 20180907
  Transmission Date: 20181010
  Serious: Yes (Other)
  Sender: FDA-Public Use
  Company Number: DE-VERTEX PHARMACEUTICALS-2018-005380

PATIENT
  Age: 21 Year
  Sex: Female
  Weight: 43 kg

DRUGS (10)
  1. PULMOZYME [Concomitant]
     Active Substance: DORNASE ALFA
     Indication: CYSTIC FIBROSIS
     Dosage: 1 AMPULE
     Route: 055
     Dates: start: 20150521
  2. CAYSTON [Concomitant]
     Active Substance: AZTREONAM
     Indication: CYSTIC FIBROSIS
     Dosage: 75 MG, TID
     Route: 055
     Dates: start: 20160428
  3. CREON [Concomitant]
     Active Substance: PANCRELIPASE AMYLASE\PANCRELIPASE LIPASE\PANCRELIPASE PROTEASE
     Indication: PANCREATIC FAILURE
     Dosage: 25000 IE
     Route: 048
     Dates: start: 1997
  4. SPIRIVA [Concomitant]
     Active Substance: TIOTROPIUM BROMIDE MONOHYDRATE
     Indication: CYSTIC FIBROSIS
     Dosage: 2 CAPSULE, QD
  5. VX?661/VX?770 [Suspect]
     Active Substance: IVACAFTOR\TEZACAFTOR
     Indication: CYSTIC FIBROSIS
     Dosage: 100MG TEZACAFTOR / 150 MG IVACAFTOR ONCE
     Route: 048
     Dates: start: 20180727, end: 20180727
  6. ADEK [Concomitant]
     Indication: CYSTIC FIBROSIS
     Dosage: 1 DOSAGE FORM
     Route: 048
  7. SALBUTAMOL [Concomitant]
     Active Substance: ALBUTEROL
     Indication: CYSTIC FIBROSIS
     Dosage: 1 DOSAGE FORM, QID
     Route: 055
     Dates: start: 20160818
  8. TOBRAMYCIN. [Concomitant]
     Active Substance: TOBRAMYCIN
     Indication: CYSTIC FIBROSIS
     Dosage: 300 MG, BID
     Route: 055
     Dates: start: 20090202
  9. NACL [Concomitant]
     Active Substance: SODIUM CHLORIDE
     Indication: CYSTIC FIBROSIS
     Dosage: 4 MILLILITER, BID
  10. VIANI [Concomitant]
     Active Substance: FLUTICASONE PROPIONATE\SALMETEROL XINAFOATE
     Indication: CYSTIC FIBROSIS
     Dosage: 50/250 MG BID
     Route: 055
     Dates: start: 20150521

REACTIONS (1)
  - Urticaria [Recovered/Resolved]

NARRATIVE: CASE EVENT DATE: 20180727
